FAERS Safety Report 10684571 (Version 1)
Quarter: 2014Q4

REPORT INFORMATION
  Report Type: Spontaneous
  Country: US (occurrence: None)
  Receive Date: 20141230
  Receipt Date: 20141230
  Transmission Date: 20150529
  Serious: Yes (Disabling)
  Sender: FDA-Public Use
  Company Number: None

PATIENT
  Age: 34 Year
  Sex: Female
  Weight: 119.75 kg

DRUGS (1)
  1. DROPERIDOL. [Suspect]
     Active Substance: DROPERIDOL
     Dosage: ONE TIME INJECTION

REACTIONS (7)
  - Tardive dyskinesia [None]
  - Feeling abnormal [None]
  - Loss of consciousness [None]
  - Anxiety [None]
  - Insomnia [None]
  - Panic attack [None]
  - Restlessness [None]

NARRATIVE: CASE EVENT DATE: 20101103
